FAERS Safety Report 20485966 (Version 2)
Quarter: 2022Q1

REPORT INFORMATION
  Report Type: Spontaneous
  Country: US (occurrence: US)
  Receive Date: 20220217
  Receipt Date: 20220330
  Transmission Date: 20220423
  Serious: No
  Sender: FDA-Public Use
  Company Number: US-PFIZER INC-202200121363

PATIENT
  Age: 55 Year
  Sex: Female
  Weight: 81.65 kg

DRUGS (1)
  1. SOMATROPIN [Suspect]
     Active Substance: SOMATROPIN
     Dosage: 1 MG, 1X/DAY

REACTIONS (2)
  - Poor quality device used [Unknown]
  - Device leakage [Unknown]

NARRATIVE: CASE EVENT DATE: 20220101
